FAERS Safety Report 7392706-X (Version None)
Quarter: 2011Q2

REPORT INFORMATION
  Report Type: 
  Country: None (occurrence: None)
  Receive Date: 20110404
  Receipt Date: 20110330
  Transmission Date: 20111010
  Serious: Yes (Other)
  Sender: FDA-Public Use
  Company Number: US-PFIZER INC-2011065506

PATIENT
  Sex: Female

DRUGS (1)
  1. CHANTIX [Suspect]
     Dosage: UNK
     Dates: end: 20110326

REACTIONS (4)
  - SWOLLEN TONGUE [None]
  - TONGUE BLISTERING [None]
  - OROPHARYNGEAL BLISTERING [None]
  - ORAL VIRAL INFECTION [None]
